FAERS Safety Report 17795300 (Version 1)
Quarter: 2020Q2

REPORT INFORMATION
  Report Type: Spontaneous
  Country: US (occurrence: US)
  Receive Date: 20200515
  Receipt Date: 20200515
  Transmission Date: 20200714
  Serious: No
  Sender: FDA-Public Use
  Company Number: US-ASTRAZENECA-2019SF65513

PATIENT
  Age: 256 Day
  Sex: Female
  Weight: 7.1 kg

DRUGS (3)
  1. SYNAGIS [Suspect]
     Active Substance: PALIVIZUMAB
     Indication: BRONCHOSPASM
     Dosage: MONTHLY
     Route: 030
     Dates: start: 20191112
  2. MULTIVITAMINS [Concomitant]
     Active Substance: VITAMINS
  3. IRON [Concomitant]
     Active Substance: IRON
     Dosage: 50.0MG UNKNOWN

REACTIONS (2)
  - Injection site rash [Unknown]
  - Pyrexia [Unknown]

NARRATIVE: CASE EVENT DATE: 20191112
